FAERS Safety Report 8800089 (Version 3)
Quarter: 2015Q1

REPORT INFORMATION
  Report Type: Report from Study
  Country: US (occurrence: US)
  Receive Date: 20120921
  Receipt Date: 20150210
  Transmission Date: 20150721
  Serious: Yes (Death)
  Sender: FDA-Public Use
  Company Number: US-ROCHE-1123790

PATIENT
  Sex: Female

DRUGS (22)
  1. PEPCID [Concomitant]
     Active Substance: FAMOTIDINE
     Dosage: SUBSEQUENTLY ON 03/APR/2008, 17/APR/2008, 01/MAY/2008
     Route: 042
     Dates: start: 20080320
  2. DECADRON [Concomitant]
     Active Substance: DEXAMETHASONE
     Dosage: SUBSEQUENTLY ON 09/FEB/2008, 21/FEB/2008, 06/MAR/200820/MAR/2008,03/APR/2008,17/APR/2008, 01/MAY/200
     Route: 042
     Dates: start: 20080124
  3. AMBIEN [Concomitant]
     Active Substance: ZOLPIDEM TARTRATE
  4. HERCEPTIN [Suspect]
     Active Substance: TRASTUZUMAB
     Route: 042
     Dates: start: 20080320
  5. DECADRON [Concomitant]
     Active Substance: DEXAMETHASONE
     Dosage: SUBSEQUENTLY ON 10/JUL/2009, 30/JUL/2009, 10/SEP/2009, 01/OCT/2009,
     Route: 042
     Dates: start: 20090820
  6. ADRIAMYCIN [Concomitant]
     Active Substance: DOXORUBICIN HYDROCHLORIDE
     Dosage: SUBSEQUENTLY ON  09/FEB/2008, 21/FEB/2008, 06/MAR/208
     Route: 042
     Dates: start: 20080124
  7. AVASTIN [Suspect]
     Active Substance: BEVACIZUMAB
     Route: 042
     Dates: start: 20090820
  8. HERCEPTIN [Suspect]
     Active Substance: TRASTUZUMAB
     Indication: BREAST CANCER
     Dosage: 03/APR/2008, 10/APR/2008, 17/APR/2008, 27/APR/208, 01/MAY/2008, 08/MAY/2008, 15/MAY/2008, 22/MAY/200
     Route: 042
     Dates: start: 20080327
  9. XELODA [Suspect]
     Active Substance: CAPECITABINE
     Indication: PRODUCT USED FOR UNKNOWN INDICATION
     Dosage: DAY 1 TO 7 AND 15 TO 21
     Route: 048
  10. ALOXI [Concomitant]
     Active Substance: PALONOSETRON HYDROCHLORIDE
     Dosage: SUBSEQUENTLY ON, 09/FEB/2008, 21/FEB/2008, 06/MAR/2008, 20/MAR/2008, 03/APR/2008, 17/APR/2008, 01/MA
     Route: 042
     Dates: start: 20080124
  11. ATIVAN [Concomitant]
     Active Substance: LORAZEPAM
     Dosage: SUBSEQUENTLY ON 24/JAN/2008, 09/FEB/2008, 21/FEB/2008, 06/MAR/2008, 10/JUL/2009, 30/JUL/2009
     Route: 042
     Dates: start: 20090820
  12. BENADRYL [Concomitant]
     Active Substance: DIPHENHYDRAMINE HYDROCHLORIDE
     Dosage: SUBSEQUENTLY ON 20/MAR/2008, 03/APR/2008, 17/APR/2008, 01/MAY/2008
     Route: 048
  13. DOXIL [Concomitant]
     Active Substance: DOXORUBICIN HYDROCHLORIDE
     Dosage: SUBSEQUENLY ON,10/JUL/2009, 30/JUL/2009, 10/SEP/2009, 01/OCT/2009
     Route: 042
     Dates: start: 20090820
  14. BENADRYL [Concomitant]
     Active Substance: DIPHENHYDRAMINE HYDROCHLORIDE
     Dosage: SUBSEQUENTLY ON, 22/MAY/2008, 29/MAY/2008, 05/JUN/2008,17/JUN/2008, 10/JUL/2009, 30/JUL/2009, 20/AUG
     Route: 048
     Dates: start: 20090101
  15. AVASTIN [Suspect]
     Active Substance: BEVACIZUMAB
     Indication: BREAST CANCER
     Dosage: SUBSEQUENTLY ON 11/JUN/2009
     Route: 042
     Dates: start: 20090507
  16. AVASTIN [Suspect]
     Active Substance: BEVACIZUMAB
     Dosage: SUBSEQUENTLY ON 30/JUL/2009
     Route: 042
     Dates: start: 20090710
  17. NEULASTA [Suspect]
     Active Substance: PEGFILGRASTIM
     Indication: BREAST CANCER
     Dosage: 08/FEB/2008, 22/FEB/2008, 07/MAR/2008, 21/MAR/2008, 04/APR/2008, 18/APR/2008, 02/MAY/2008,
     Route: 058
     Dates: start: 20080125
  18. TAXOL [Concomitant]
     Active Substance: PACLITAXEL
     Dosage: ,03/APR/2008, 17/APR/2008, 01/MAY/2008
     Route: 042
     Dates: start: 20080320
  19. COENZYME Q10 COMPLEX (UNK INGREDIENTS) [Concomitant]
  20. ARANESP [Concomitant]
     Active Substance: DARBEPOETIN ALFA
     Dosage: SUBSEQUENLY ON 10/SEP/2009
     Route: 042
     Dates: start: 20090820
  21. CYTOXAN [Concomitant]
     Active Substance: CYCLOPHOSPHAMIDE
     Dosage: SUBSEQUWNTLY ON 09/FEB/2008, 21/FEB/2008, 06/MAR/208
     Route: 042
     Dates: start: 20080124
  22. ZOLPIDEM [Concomitant]
     Active Substance: ZOLPIDEM\ZOLPIDEM TARTRATE

REACTIONS (32)
  - Pelvic pain [Unknown]
  - Abdominal distension [Unknown]
  - Musculoskeletal chest pain [Unknown]
  - Metastases to bone [Unknown]
  - Haematochezia [Unknown]
  - Leukoerythroblastic anaemia [Unknown]
  - Paroxysmal nocturnal haemoglobinuria [Unknown]
  - Asthenia [Unknown]
  - Alanine aminotransferase increased [Unknown]
  - Tenderness [Unknown]
  - Constipation [Unknown]
  - Blood alkaline phosphatase increased [Unknown]
  - Diarrhoea [Unknown]
  - Menstruation irregular [Unknown]
  - Bone pain [Unknown]
  - Polychromasia [Not Recovered/Not Resolved]
  - Haemorrhage [Unknown]
  - Hot flush [Unknown]
  - Nausea [Unknown]
  - Cough [Unknown]
  - Disease progression [Fatal]
  - Carcinoembryonic antigen increased [Unknown]
  - Musculoskeletal pain [Unknown]
  - Dyspnoea [Unknown]
  - Fatigue [Unknown]
  - Aspartate aminotransferase increased [Unknown]
  - Epistaxis [Unknown]
  - Thrombocytopenia [Unknown]
  - Red blood cell count decreased [Unknown]
  - Bone density increased [Unknown]
  - Anaemia [Unknown]
  - Myelodysplastic syndrome [Unknown]
